FAERS Safety Report 19736860 (Version 1)
Quarter: 2021Q3

REPORT INFORMATION
  Report Type: Spontaneous
  Country: US (occurrence: US)
  Receive Date: 20210824
  Receipt Date: 20210824
  Transmission Date: 20211014
  Serious: No
  Sender: FDA-Public Use
  Company Number: US-ORGANON-O2108USA001264

PATIENT
  Age: 18 Year
  Sex: Female
  Weight: 86.17 kg

DRUGS (2)
  1. NEXPLANON [Suspect]
     Active Substance: ETONOGESTREL
     Indication: MENSTRUAL CYCLE MANAGEMENT
     Dosage: 1 ROD FOR 3 YEARS IN LEFT ARM
     Route: 059
     Dates: start: 20190205
  2. NEXPLANON [Suspect]
     Active Substance: ETONOGESTREL
     Indication: DYSMENORRHOEA

REACTIONS (3)
  - Pain in extremity [Not Recovered/Not Resolved]
  - Product use in unapproved indication [Unknown]
  - Fall [Not Recovered/Not Resolved]

NARRATIVE: CASE EVENT DATE: 20190205
